FAERS Safety Report 5771950-9 (Version None)
Quarter: 2008Q2

REPORT INFORMATION
  Report Type: 
  Country: None (occurrence: None)
  Receive Date: 20080613
  Receipt Date: 20080611
  Transmission Date: 20081010
  Serious: Yes (Other)
  Sender: FDA-Public Use
  Company Number: US-ASTRAZENECA-2008UW11699

PATIENT
  Age: 80 Year
  Sex: Female

DRUGS (10)
  1. NEXIUM [Suspect]
     Route: 048
  2. LASIX [Concomitant]
  3. PLAVIX [Concomitant]
  4. ACCUPRIL [Concomitant]
  5. METOPROLOL [Concomitant]
     Route: 048
  6. ASPIRIN [Concomitant]
  7. VITAMIN D+ CALCIUM [Concomitant]
  8. DIGOXIN [Concomitant]
  9. ZOCOR [Concomitant]
  10. POTASSIUM CHLORIDE [Concomitant]

REACTIONS (1)
  - CEREBROVASCULAR ACCIDENT [None]
